FAERS Safety Report 4273370-5 (Version None)
Quarter: 2004Q1

REPORT INFORMATION
  Report Type: 
  Country: None (occurrence: None)
  Receive Date: 20040114
  Receipt Date: 20040102
  Transmission Date: 20041129
  Serious: Yes (Disabling, Other)
  Sender: FDA-Public Use
  Company Number: GB-JNJFOC-20031102368

PATIENT
  Age: 10 Year
  Sex: Female

DRUGS (3)
  1. RISPERDAL [Suspect]
     Indication: AGITATION
     Dosage: 1.5 MG, 1 IN DAY, ORAL
     Route: 048
     Dates: start: 20030925, end: 20031111
  2. RISPERDAL [Suspect]
     Indication: ANXIETY
     Dosage: 1.5 MG, 1 IN DAY, ORAL
     Route: 048
     Dates: start: 20030925, end: 20031111
  3. RISPERDAL [Suspect]
     Indication: INSOMNIA
     Dosage: 1.5 MG, 1 IN DAY, ORAL
     Route: 048
     Dates: start: 20030925, end: 20031111

REACTIONS (7)
  - AGITATION [None]
  - ANXIETY [None]
  - FEAR [None]
  - HALLUCINATION, AUDITORY [None]
  - INTENTIONAL SELF-INJURY [None]
  - SUSPICIOUSNESS [None]
  - THINKING ABNORMAL [None]
